FAERS Safety Report 7295848-2 (Version None)
Quarter: 2011Q1

REPORT INFORMATION
  Report Type: 
  Country: None (occurrence: None)
  Receive Date: 20110216
  Receipt Date: 20110111
  Transmission Date: 20110831
  Serious: No
  Sender: FDA-Public Use
  Company Number: US-ABBOTT-11P-163-0696463-00

PATIENT
  Sex: Male
  Weight: 76.272 kg

DRUGS (3)
  1. PROZAC [Concomitant]
     Indication: PRODUCT USED FOR UNKNOWN INDICATION
  2. AMBIEN [Concomitant]
     Indication: PRODUCT USED FOR UNKNOWN INDICATION
  3. SIMCOR [Suspect]
     Indication: HYPERLIPIDAEMIA
     Dates: start: 20101101

REACTIONS (3)
  - FLUSHING [None]
  - RASH PAPULAR [None]
  - PRURITUS [None]
